FAERS Safety Report 6923115-2 (Version None)
Quarter: 2010Q3

REPORT INFORMATION
  Report Type: 
  Country: None (occurrence: None)
  Receive Date: 20100813
  Receipt Date: 20100806
  Transmission Date: 20110219
  Serious: Yes (Other)
  Sender: FDA-Public Use
  Company Number: PH-PFIZER INC-2010099058

PATIENT
  Age: 35 Year
  Sex: Male
  Weight: 67 kg

DRUGS (2)
  1. MEDROL [Suspect]
     Indication: HYPERSENSITIVITY
     Dosage: 8 MG, 1X/DAY
     Route: 048
     Dates: start: 20090101
  2. AUGMENTIN '125' [Suspect]
     Indication: INFECTION
     Dosage: 375 MG, 2X/DAY
     Route: 048
     Dates: start: 20100723, end: 20100806

REACTIONS (7)
  - CHEST DISCOMFORT [None]
  - HEART RATE INCREASED [None]
  - INNER EAR INFLAMMATION [None]
  - MALAISE [None]
  - NASOPHARYNGITIS [None]
  - OROPHARYNGEAL PAIN [None]
  - PRODUCTIVE COUGH [None]
